FAERS Safety Report 7244208 (Version 3)
Quarter: 2015Q1

REPORT INFORMATION
  Report Type: Spontaneous
  Country: IT (occurrence: None)
  Receive Date: 20091224
  Receipt Date: 20150121
  Transmission Date: 20150721
  Serious: Yes (Death, Other)
  Sender: FDA-Public Use
  Company Number: 2009003899

PATIENT
  Age: 64 Year
  Sex: Male

DRUGS (7)
  1. ERLOTINIB [Suspect]
     Active Substance: ERLOTINIB
     Indication: PANCREATIC CARCINOMA
     Dosage: (QD), ORAL
     Route: 048
     Dates: start: 20081204
  2. INSULIN (INSULIN) [Concomitant]
     Active Substance: INSULIN NOS
  3. INTERMEDIA INSULINE (INTERMEDIA INSULINE) [Concomitant]
  4. JURNISTA (HYDROMORPHONE HYDROCHLORIDE) [Concomitant]
  5. H1N1 VACCINE (H1N1 VACCINE) [Concomitant]
  6. ANTRA [Concomitant]
     Active Substance: OMEPRAZOLE
  7. CREON [Concomitant]
     Active Substance: PANCRELIPASE AMYLASE\PANCRELIPASE LIPASE\PANCRELIPASE PROTEASE

REACTIONS (12)
  - Platelet count decreased [None]
  - Haemoglobin decreased [None]
  - Alanine aminotransferase increased [None]
  - Hypothermia [None]
  - Blood creatinine increased [None]
  - Blood bilirubin increased [None]
  - Loss of consciousness [None]
  - Aspartate aminotransferase increased [None]
  - Hypoglycaemia [None]
  - Septic shock [None]
  - Haemorrhage [None]
  - Dyspnoea [None]

NARRATIVE: CASE EVENT DATE: 20091206
